FAERS Safety Report 4342267-4 (Version None)
Quarter: 2004Q2

REPORT INFORMATION
  Report Type: 
  Country: None (occurrence: None)
  Receive Date: 20040420
  Receipt Date: 20040420
  Transmission Date: 20050107
  Serious: No
  Sender: FDA-Public Use
  Company Number: None

PATIENT
  Age: 34 Year
  Sex: Female
  Weight: 117.9352 kg

DRUGS (2)
  1. OXYTOCIN [Suspect]
     Indication: NORMAL DELIVERY
     Dosage: 20U IVF
     Route: 042
  2. OXYTOCIN [Suspect]

REACTIONS (2)
  - HAEMORRHAGE [None]
  - THROMBOSIS [None]
